FAERS Safety Report 18415647 (Version 3)
Quarter: 2021Q3

REPORT INFORMATION
  Report Type: Spontaneous
  Country: US (occurrence: US)
  Receive Date: 20201022
  Receipt Date: 20210701
  Transmission Date: 20211014
  Serious: Yes (Other)
  Sender: FDA-Public Use
  Company Number: US-PFIZER INC-2020409122

PATIENT
  Age: 42 Year
  Sex: Female

DRUGS (22)
  1. PREVACID [Suspect]
     Active Substance: LANSOPRAZOLE
     Dosage: UNK
  2. TRAMADOL. [Concomitant]
     Active Substance: TRAMADOL
     Indication: PAIN
     Dosage: UNK
     Dates: start: 2015, end: 2016
  3. GARLIC. [Concomitant]
     Active Substance: GARLIC
     Indication: ROUTINE HEALTH MAINTENANCE
     Dosage: UNK
     Dates: start: 2015
  4. FAMOTIDINE. [Concomitant]
     Active Substance: FAMOTIDINE
     Dosage: UNK
     Dates: start: 2006
  5. PANTOPRAZOLE [Suspect]
     Active Substance: PANTOPRAZOLE
     Indication: GASTROOESOPHAGEAL REFLUX DISEASE
     Dosage: 40 MG, DAILY
     Dates: start: 201509, end: 201511
  6. VITAMIN D [Concomitant]
     Active Substance: VITAMIN D NOS
     Indication: VITAMIN D DEFICIENCY
     Dosage: UNK
     Dates: start: 2015
  7. FERROUS SULFATE. [Concomitant]
     Active Substance: FERROUS SULFATE
     Indication: ANAEMIA
     Dosage: UNK
     Dates: start: 2015
  8. PRILOSEC [Suspect]
     Active Substance: OMEPRAZOLE MAGNESIUM
     Indication: GASTROOESOPHAGEAL REFLUX DISEASE
     Dosage: 20?40 MG, DAILY
     Dates: start: 201508, end: 201510
  9. AMLODIPINE [Concomitant]
     Active Substance: AMLODIPINE BESYLATE
     Indication: BLOOD PRESSURE ABNORMAL
     Dosage: UNK
     Dates: start: 2015, end: 2016
  10. PROTONIX [Suspect]
     Active Substance: PANTOPRAZOLE SODIUM
     Dosage: 40 MG, DAILY
     Dates: start: 200405, end: 200611
  11. NEXIUM [Suspect]
     Active Substance: ESOMEPRAZOLE MAGNESIUM
     Indication: GASTROOESOPHAGEAL REFLUX DISEASE
     Dosage: UNK
     Dates: start: 200601, end: 201512
  12. OMEPRAZOLE. [Suspect]
     Active Substance: OMEPRAZOLE
     Indication: GASTROOESOPHAGEAL REFLUX DISEASE
     Dosage: 20?40 MG, DAILY
     Dates: start: 201505, end: 201508
  13. GABAPENTIN. [Concomitant]
     Active Substance: GABAPENTIN
     Indication: FIBROMYALGIA
     Dosage: UNK
     Dates: start: 2011, end: 2016
  14. MILK THISTLE [Concomitant]
     Active Substance: DIETARY SUPPLEMENT\HERBALS\MILK THISTLE
     Indication: ROUTINE HEALTH MAINTENANCE
     Dosage: UNK
     Dates: start: 2015
  15. NEXIUM [Suspect]
     Active Substance: ESOMEPRAZOLE MAGNESIUM
     Dosage: 40 MG, DAILY
     Dates: start: 200611, end: 201410
  16. OMEPRAZOLE. [Suspect]
     Active Substance: OMEPRAZOLE
     Dosage: 20?40 MG, DAILY
     Dates: start: 201602, end: 201611
  17. ATORVASTATIN [Concomitant]
     Active Substance: ATORVASTATIN
     Indication: BLOOD CHOLESTEROL ABNORMAL
     Dosage: UNK
     Dates: start: 2015, end: 2016
  18. FOLIC ACID. [Concomitant]
     Active Substance: FOLIC ACID
     Indication: ANAEMIA
     Dosage: UNK
     Dates: start: 2015
  19. PROTONIX [Suspect]
     Active Substance: PANTOPRAZOLE SODIUM
     Indication: GASTROOESOPHAGEAL REFLUX DISEASE
     Dosage: UNK
     Dates: start: 200601, end: 201512
  20. LOSARTAN. [Concomitant]
     Active Substance: LOSARTAN
     Indication: BLOOD PRESSURE ABNORMAL
     Dosage: UNK
     Dates: start: 2014, end: 2015
  21. FISH OIL [Concomitant]
     Active Substance: FISH OIL
     Indication: ROUTINE HEALTH MAINTENANCE
     Dosage: UNK
     Dates: start: 2015
  22. VITAMIN B12 [Concomitant]
     Active Substance: CYANOCOBALAMIN
     Indication: VITAMIN B12 DEFICIENCY
     Dosage: UNK
     Dates: start: 2015

REACTIONS (1)
  - Acute kidney injury [Not Recovered/Not Resolved]

NARRATIVE: CASE EVENT DATE: 20151017
